FAERS Safety Report 13892066 (Version 1)
Quarter: 2017Q3

REPORT INFORMATION
  Report Type: Spontaneous
  Country: CN (occurrence: CN)
  Receive Date: 20170822
  Receipt Date: 20170822
  Transmission Date: 20171127
  Serious: Yes (Life-Threatening, Hospitalization)
  Sender: FDA-Public Use
  Company Number: CN-NOVOPROD-559135

PATIENT
  Age: 55 Year
  Sex: Female
  Weight: 65 kg

DRUGS (1)
  1. NOVOMIX 30 PENFILL [Suspect]
     Active Substance: INSULIN ASPART
     Indication: TYPE 2 DIABETES MELLITUS
     Dosage: 32 U, QD(17 U IN THE MORNING, 15U IN THE EVENING)
     Route: 058
     Dates: start: 20170315, end: 20170518

REACTIONS (6)
  - Nausea [Recovering/Resolving]
  - Decreased appetite [Unknown]
  - Apathy [Unknown]
  - Blood pressure increased [Recovering/Resolving]
  - Hypersensitivity [Recovering/Resolving]
  - Abdominal pain lower [Not Recovered/Not Resolved]

NARRATIVE: CASE EVENT DATE: 20170518
